FAERS Safety Report 10478341 (Version 1)
Quarter: 2014Q3

REPORT INFORMATION
  Report Type: Spontaneous
  Country: US (occurrence: None)
  Receive Date: 20140925
  Receipt Date: 20140925
  Transmission Date: 20150326
  Serious: No
  Sender: FDA-Public Use
  Company Number: None

PATIENT
  Age: 38 Year
  Sex: Male
  Weight: 68.04 kg

DRUGS (1)
  1. MINOXIDIL. [Suspect]
     Active Substance: MINOXIDIL
     Indication: ALOPECIA
     Route: 061
     Dates: start: 20040810, end: 20140831

REACTIONS (10)
  - Pruritus generalised [None]
  - Vasculitis [None]
  - Skin disorder [None]
  - Peripheral swelling [None]
  - Eczema [None]
  - Dizziness [None]
  - Dry eye [None]
  - Headache [None]
  - Dry skin [None]
  - Swelling face [None]
